FAERS Safety Report 6193018-2 (Version None)
Quarter: 2009Q2

REPORT INFORMATION
  Report Type: 
  Country: None (occurrence: None)
  Receive Date: 20090518
  Receipt Date: 20090417
  Transmission Date: 20091009
  Serious: No
  Sender: FDA-Public Use
  Company Number: US-BAYER-200913483NA

PATIENT
  Age: 19 Year
  Sex: Female
  Weight: 68 kg

DRUGS (1)
  1. MIRENA [Suspect]
     Indication: CONTRACEPTION
     Dosage: CONTINUOUS
     Route: 016
     Dates: start: 20060501

REACTIONS (3)
  - ABDOMINAL PAIN LOWER [None]
  - DEVICE BREAKAGE [None]
  - DYSPAREUNIA [None]
